FAERS Safety Report 9412416 (Version 2)
Quarter: 2013Q3

REPORT INFORMATION
  Report Type: Spontaneous
  Country: FR (occurrence: None)
  Receive Date: 20130510
  Receipt Date: 20130828
  Transmission Date: 20140515
  Serious: Yes (Hospitalization)
  Sender: FDA-Public Use
  Company Number: SYM-2013-01408

PATIENT
  Age: 79 Year
  Sex: Male

DRUGS (7)
  1. MONO TILDIEM LP [Suspect]
     Indication: PRODUCT USED FOR UNKNOWN INDICATION
     Route: 048
     Dates: start: 2005, end: 201302
  2. INDAPAMIDE [Suspect]
     Route: 048
     Dates: start: 201210, end: 201302
  3. ALLOPURINOL (ALLOPURINOL) UNKNOWN [Suspect]
     Route: 048
  4. ALPRAZOLAM (ALPRAZOLAM) [Suspect]
     Route: 048
     Dates: start: 201209
  5. ATORVASTATIN (ATORVASTATIN) [Suspect]
     Route: 048
  6. PAROXETINE (PAROXETINE) [Suspect]
     Route: 048
     Dates: start: 20130103
  7. SINTROM [Suspect]
     Route: 048

REACTIONS (10)
  - Haemolytic anaemia [None]
  - Thrombocytopenia [None]
  - Gastritis [None]
  - Lymphadenopathy [None]
  - Normochromic normocytic anaemia [None]
  - Abdominal pain upper [None]
  - Chromaturia [None]
  - Myelodysplastic syndrome [None]
  - Oral herpes [None]
  - Oral candidiasis [None]
